FAERS Safety Report 9306165 (Version 1)
Quarter: 2013Q2

REPORT INFORMATION
  Report Type: Spontaneous
  Country: CA (occurrence: CA)
  Receive Date: 20130523
  Receipt Date: 20130523
  Transmission Date: 20140414
  Serious: Yes (Other)
  Sender: FDA-Public Use
  Company Number: CA-GLAXOSMITHKLINE-A1013495A

PATIENT
  Age: 61 Year
  Sex: Female

DRUGS (8)
  1. VOTRIENT [Suspect]
     Indication: SARCOMA
     Dosage: 800MG PER DAY
     Route: 048
     Dates: start: 20121219, end: 20130416
  2. EYE CREAM (NOS) [Suspect]
     Indication: PRODUCT USED FOR UNKNOWN INDICATION
     Route: 061
     Dates: start: 20130218
  3. VENTOLIN [Concomitant]
  4. FLOVENT [Concomitant]
  5. LOSEC [Concomitant]
  6. HCTZ [Concomitant]
  7. AMLODIPINE [Concomitant]
  8. RAMIPRIL [Concomitant]

REACTIONS (8)
  - Burning sensation [Not Recovered/Not Resolved]
  - Skin exfoliation [Not Recovered/Not Resolved]
  - Eye disorder [Not Recovered/Not Resolved]
  - Pruritus [Not Recovered/Not Resolved]
  - Rash pruritic [Not Recovered/Not Resolved]
  - Nasal ulcer [Unknown]
  - Ill-defined disorder [Not Recovered/Not Resolved]
  - Metastases to liver [Not Recovered/Not Resolved]
